FAERS Safety Report 20729062 (Version 3)
Quarter: 2022Q3

REPORT INFORMATION
  Report Type: Report from Study
  Country: GR (occurrence: GR)
  Receive Date: 20220420
  Receipt Date: 20220708
  Transmission Date: 20221027
  Serious: Yes (Hospitalization, Other)
  Sender: FDA-Public Use
  Company Number: GR-CELGENE-GRC-20220301250

PATIENT
  Age: 71 Year
  Sex: Male
  Weight: 82.20 kg

DRUGS (37)
  1. LENALIDOMIDE [Suspect]
     Active Substance: LENALIDOMIDE
     Indication: Plasma cell myeloma
     Dosage: FREQUENCY TEXT: NOT PROVIDED
     Route: 048
     Dates: start: 20210913
  2. LENALIDOMIDE [Suspect]
     Active Substance: LENALIDOMIDE
  3. CARFILZOMIB [Suspect]
     Active Substance: CARFILZOMIB
     Indication: Plasma cell myeloma
     Dosage: FREQUENCY TEXT: NOT PROVIDED
     Route: 042
     Dates: start: 20210913, end: 20220217
  4. CARFILZOMIB [Suspect]
     Active Substance: CARFILZOMIB
  5. CARFILZOMIB [Suspect]
     Active Substance: CARFILZOMIB
  6. DEXAMETHASONE [Concomitant]
     Active Substance: DEXAMETHASONE
     Indication: Product used for unknown indication
     Dosage: FREQUENCY TEXT: NOT PROVIDED
     Route: 065
     Dates: start: 20210913
  7. DEXAMETHASONE [Concomitant]
     Active Substance: DEXAMETHASONE
     Indication: Plasma cell myeloma
     Dates: start: 20210913
  8. ASPIRIN [Concomitant]
     Active Substance: ASPIRIN
     Dosage: FREQUENCY TEXT: NOT PROVIDED
     Route: 065
     Dates: start: 1999
  9. ASPIRIN [Concomitant]
     Active Substance: ASPIRIN
     Indication: Product used for unknown indication
  10. ASPIRIN [Concomitant]
     Active Substance: ASPIRIN
     Indication: Product used for unknown indication
  11. ASPIRIN [Concomitant]
     Active Substance: ASPIRIN
  12. TAMSULOSIN HYDROCHLORIDE [Concomitant]
     Active Substance: TAMSULOSIN HYDROCHLORIDE
     Dosage: FREQUENCY TEXT: NOT PROVIDED
     Route: 065
     Dates: start: 2006
  13. TAMSULOSIN HYDROCHLORIDE [Concomitant]
     Active Substance: TAMSULOSIN HYDROCHLORIDE
     Indication: Product used for unknown indication
  14. TAMSULOSIN HYDROCHLORIDE [Concomitant]
     Active Substance: TAMSULOSIN HYDROCHLORIDE
     Indication: Product used for unknown indication
  15. TAMSULOSIN HYDROCHLORIDE [Concomitant]
     Active Substance: TAMSULOSIN HYDROCHLORIDE
  16. VALTREX [Concomitant]
     Active Substance: VALACYCLOVIR HYDROCHLORIDE
     Dosage: FREQUENCY TEXT: NOT PROVIDED
     Route: 065
     Dates: start: 20200907
  17. VALTREX [Concomitant]
     Active Substance: VALACYCLOVIR HYDROCHLORIDE
     Indication: Product used for unknown indication
  18. VALTREX [Concomitant]
     Active Substance: VALACYCLOVIR HYDROCHLORIDE
     Indication: Product used for unknown indication
  19. VALTREX [Concomitant]
     Active Substance: VALACYCLOVIR HYDROCHLORIDE
  20. SULFAMETHOXAZOLE\TRIMETHOPRIM [Concomitant]
     Active Substance: SULFAMETHOXAZOLE\TRIMETHOPRIM
     Dosage: FREQUENCY TEXT: NOT PROVIDED
     Route: 065
     Dates: start: 20200907
  21. SULFAMETHOXAZOLE\TRIMETHOPRIM [Concomitant]
     Active Substance: SULFAMETHOXAZOLE\TRIMETHOPRIM
     Indication: Product used for unknown indication
  22. SULFAMETHOXAZOLE\TRIMETHOPRIM [Concomitant]
     Active Substance: SULFAMETHOXAZOLE\TRIMETHOPRIM
     Indication: Product used for unknown indication
  23. SULFAMETHOXAZOLE\TRIMETHOPRIM [Concomitant]
     Active Substance: SULFAMETHOXAZOLE\TRIMETHOPRIM
  24. ATORVASTATIN CALCIUM [Concomitant]
     Active Substance: ATORVASTATIN CALCIUM
     Dosage: FREQUENCY TEXT: NOT PROVIDED
     Route: 065
     Dates: start: 2006
  25. ATORVASTATIN CALCIUM [Concomitant]
     Active Substance: ATORVASTATIN CALCIUM
     Indication: Product used for unknown indication
  26. ATORVASTATIN CALCIUM [Concomitant]
     Active Substance: ATORVASTATIN CALCIUM
     Indication: Product used for unknown indication
  27. ATORVASTATIN CALCIUM [Concomitant]
     Active Substance: ATORVASTATIN CALCIUM
  28. METFORMIN HYDROCHLORIDE\VILDAGLIPTIN [Concomitant]
     Active Substance: METFORMIN HYDROCHLORIDE\VILDAGLIPTIN
     Dosage: FREQUENCY TEXT: NOT PROVIDED
     Route: 065
     Dates: start: 2011
  29. METFORMIN HYDROCHLORIDE\VILDAGLIPTIN [Concomitant]
     Active Substance: METFORMIN HYDROCHLORIDE\VILDAGLIPTIN
     Indication: Product used for unknown indication
  30. METFORMIN HYDROCHLORIDE\VILDAGLIPTIN [Concomitant]
     Active Substance: METFORMIN HYDROCHLORIDE\VILDAGLIPTIN
     Indication: Product used for unknown indication
  31. METFORMIN HYDROCHLORIDE\VILDAGLIPTIN [Concomitant]
     Active Substance: METFORMIN HYDROCHLORIDE\VILDAGLIPTIN
  32. INDAPAMIDE [Concomitant]
     Active Substance: INDAPAMIDE
     Route: 065
     Dates: start: 2006
  33. INDAPAMIDE [Concomitant]
     Active Substance: INDAPAMIDE
     Indication: Product used for unknown indication
  34. LOSEC [Concomitant]
     Active Substance: OMEPRAZOLE
     Route: 065
     Dates: start: 20200907
  35. LOSEC [Concomitant]
     Active Substance: OMEPRAZOLE
     Indication: Product used for unknown indication
  36. METOPROLOL FUMARATE [Concomitant]
     Active Substance: METOPROLOL FUMARATE
     Route: 065
     Dates: start: 1999
  37. METOPROLOL FUMARATE [Concomitant]
     Active Substance: METOPROLOL FUMARATE
     Indication: Product used for unknown indication

REACTIONS (1)
  - Thrombotic microangiopathy [Not Recovered/Not Resolved]

NARRATIVE: CASE EVENT DATE: 20220220
